FAERS Safety Report 7126618-3 (Version None)
Quarter: 2010Q4

REPORT INFORMATION
  Report Type: 
  Country: None (occurrence: None)
  Receive Date: 20101129
  Receipt Date: 20101118
  Transmission Date: 20110411
  Serious: Yes (Death)
  Sender: FDA-Public Use
  Company Number: PL-CELGENEUS-129-50794-10112329

PATIENT
  Sex: Male

DRUGS (1)
  1. VIDAZA [Suspect]
     Route: 058

REACTIONS (2)
  - AGRANULOCYTOSIS [None]
  - SEPSIS [None]
